FAERS Safety Report 16769194 (Version 1)
Quarter: 2019Q3

REPORT INFORMATION
  Report Type: Spontaneous
  Country: US (occurrence: US)
  Receive Date: 20190903
  Receipt Date: 20190903
  Transmission Date: 20191005
  Serious: Yes (Death, Other)
  Sender: FDA-Public Use
  Company Number: US-OTSUKA-2019_031004

PATIENT
  Age: 64 Year
  Sex: Male

DRUGS (1)
  1. REXULTI [Suspect]
     Active Substance: BREXPIPRAZOLE
     Indication: PSYCHOTIC DISORDER
     Dosage: 4 MG, QD
     Route: 065

REACTIONS (12)
  - Blood glucose increased [Unknown]
  - Confusional state [Unknown]
  - Suicidal ideation [Unknown]
  - Lethargy [Unknown]
  - Anger [Unknown]
  - Death [Fatal]
  - Product use in unapproved indication [Unknown]
  - Muscular weakness [Unknown]
  - Musculoskeletal stiffness [Unknown]
  - Gait inability [Unknown]
  - Amnesia [Unknown]
  - Dysphagia [Unknown]

NARRATIVE: CASE EVENT DATE: 20190720
